FAERS Safety Report 23040577 (Version 8)
Quarter: 2024Q4

REPORT INFORMATION
  Report Type: Spontaneous
  Country: US (occurrence: US)
  Receive Date: 20231006
  Receipt Date: 20241209
  Transmission Date: 20250115
  Serious: Yes (Other)
  Sender: SANOFI AVENTIS
  Company Number: US-SA-SAC20231003001691

PATIENT
  Age: 66 Year
  Sex: Female

DRUGS (1)
  1. KEVZARA [Suspect]
     Active Substance: SARILUMAB
     Indication: Rheumatoid arthritis
     Dosage: 200 MG, QOW
     Route: 058
     Dates: start: 201906

REACTIONS (13)
  - Angina pectoris [Unknown]
  - Muscular weakness [Unknown]
  - Neuralgia [Unknown]
  - Pyrexia [Unknown]
  - Pain in extremity [Unknown]
  - Dehydration [Unknown]
  - Pain [Unknown]
  - Tendon pain [Unknown]
  - Contusion [Unknown]
  - Fall [Unknown]
  - Arthralgia [Unknown]
  - Hypersensitivity [Recovering/Resolving]
  - Influenza [Recovering/Resolving]
